FAERS Safety Report 19094009 (Version 1)
Quarter: 2021Q2

REPORT INFORMATION
  Report Type: Spontaneous
  Country: CN (occurrence: CN)
  Receive Date: 20210405
  Receipt Date: 20210405
  Transmission Date: 20210717
  Serious: Yes (Hospitalization, Other)
  Sender: FDA-Public Use
  Company Number: CN-ASTRAZENECA-2021A146105

PATIENT
  Age: 65 Year
  Sex: Female
  Weight: 53 kg

DRUGS (3)
  1. LYNPARZA [Suspect]
     Active Substance: OLAPARIB
     Dosage: TWO TIMES DAILY, ONE AND A HALF TABLETS AT A TIME
     Route: 048
     Dates: start: 201809
  2. LYNPARZA [Suspect]
     Active Substance: OLAPARIB
     Dosage: 4 TABLETS FOR EVERY DAY, SOMETIMES TOOK DRUG APART TO USE, ONE AND HALF TABLET FOR EVERY TIME, 3 ...
     Route: 048
  3. LYNPARZA [Suspect]
     Active Substance: OLAPARIB
     Dosage: 250.0MG UNKNOWN
     Route: 048

REACTIONS (3)
  - Metastases to central nervous system [Unknown]
  - White blood cell count decreased [Unknown]
  - Intentional product use issue [Not Recovered/Not Resolved]

NARRATIVE: CASE EVENT DATE: 202005
